FAERS Safety Report 22808821 (Version 7)
Quarter: 2023Q4

REPORT INFORMATION
  Report Type: Spontaneous
  Country: US (occurrence: US)
  Receive Date: 20230810
  Receipt Date: 20231030
  Transmission Date: 20240110
  Serious: No
  Sender: FDA-Public Use
  Company Number: US-PFIZER INC-202300268305

PATIENT
  Age: 13 Year
  Sex: Female

DRUGS (2)
  1. GENOTROPIN [Suspect]
     Active Substance: SOMATROPIN
     Dosage: 1.6 MG (6 DAYS/WEEK)
  2. GENOTROPIN [Suspect]
     Active Substance: SOMATROPIN
     Dosage: 2 MG
     Dates: start: 202302

REACTIONS (4)
  - Device mechanical issue [Unknown]
  - Device occlusion [Unknown]
  - Drug dose omission by device [Unknown]
  - Device breakage [Unknown]
